FAERS Safety Report 8999640 (Version 1)
Quarter: 2013Q1

REPORT INFORMATION
  Report Type: Spontaneous
  Country: GB (occurrence: GB)
  Receive Date: 20130102
  Receipt Date: 20130102
  Transmission Date: 20140127
  Serious: Yes (Other)
  Sender: FDA-Public Use
  Company Number: GB-ASTRAZENECA-2012SE95312

PATIENT
  Sex: Male
  Weight: 70 kg

DRUGS (2)
  1. ATENOLOL [Suspect]
     Indication: PALPITATIONS
     Route: 048
     Dates: start: 19921208, end: 20121209
  2. COLCHICINE [Concomitant]

REACTIONS (3)
  - Hypoacusis [Recovered/Resolved]
  - Vertigo [Recovered/Resolved]
  - Feeling abnormal [Recovered/Resolved]
